FAERS Safety Report 9462067 (Version 2)
Quarter: 2015Q1

REPORT INFORMATION
  Report Type: Report from Study
  Country: US (occurrence: US)
  Receive Date: 20130816
  Receipt Date: 20150204
  Transmission Date: 20150721
  Serious: Yes (Other)
  Sender: FDA-Public Use
  Company Number: US-BAYER-2013-097864

PATIENT
  Age: 65 Year
  Sex: Male

DRUGS (3)
  1. NEXAVAR [Suspect]
     Active Substance: SORAFENIB
     Indication: HEPATIC CANCER
     Dosage: 400 MG, BID
     Route: 048
  2. ISOSORBIDE [Concomitant]
     Active Substance: ISOSORBIDE
  3. NEXAVAR [Suspect]
     Active Substance: SORAFENIB
     Indication: HEPATIC CANCER
     Dosage: 4 X 200 MG
     Route: 048
     Dates: start: 20130208

REACTIONS (6)
  - Eating disorder [None]
  - Oral pustule [None]
  - Tongue blistering [None]
  - Blood blister [None]
  - Oral mucosal blistering [None]
  - Stomatitis [Unknown]

NARRATIVE: CASE EVENT DATE: 2013
